FAERS Safety Report 9750073 (Version 2)
Quarter: 2015Q3

REPORT INFORMATION
  Report Type: Spontaneous
  Country: DE (occurrence: DE)
  Receive Date: 20131212
  Receipt Date: 20150730
  Transmission Date: 20151125
  Serious: No
  Sender: FDA-Public Use
  Company Number: DE-GILEAD-DE-CVT-090829

PATIENT
  Age: 71 Year
  Sex: Male

DRUGS (9)
  1. CLOPIDOGREL [Concomitant]
     Active Substance: CLOPIDOGREL BISULFATE
     Route: 048
  2. RANEXA [Suspect]
     Active Substance: RANOLAZINE
     Route: 048
  3. SORTIS [Concomitant]
     Active Substance: ATORVASTATIN
     Route: 048
  4. CORVATON [Concomitant]
     Active Substance: MOLSIDOMINE
     Route: 048
  5. RANEXA [Suspect]
     Active Substance: RANOLAZINE
     Indication: ANGINA PECTORIS
     Route: 048
     Dates: start: 20091123
  6. ACCUPRO [Concomitant]
     Active Substance: QUINAPRIL HYDROCHLORIDE
     Route: 048
  7. ALLOPURINOL. [Concomitant]
     Active Substance: ALLOPURINOL
     Route: 048
  8. NEBILET [Concomitant]
     Active Substance: NEBIVOLOL
     Route: 048
  9. ESIDRIX [Concomitant]
     Active Substance: HYDROCHLOROTHIAZIDE
     Route: 048

REACTIONS (2)
  - Headache [Not Recovered/Not Resolved]
  - Head discomfort [Not Recovered/Not Resolved]

NARRATIVE: CASE EVENT DATE: 20091125
